FAERS Safety Report 14609822 (Version 1)
Quarter: 2018Q1

REPORT INFORMATION
  Report Type: Report from Study
  Country: US (occurrence: US)
  Receive Date: 20180307
  Receipt Date: 20180307
  Transmission Date: 20180509
  Serious: Yes (Other)
  Sender: FDA-Public Use
  Company Number: US-EMD SERONO-E2B_90022317

PATIENT
  Age: 41 Year
  Sex: Male

DRUGS (4)
  1. REBIF [Suspect]
     Active Substance: INTERFERON BETA-1A
     Route: 058
     Dates: start: 20180212, end: 20180214
  2. POTASSIUM [Concomitant]
     Active Substance: POTASSIUM
     Indication: PALPITATIONS
  3. IBUPROFEN. [Concomitant]
     Active Substance: IBUPROFEN
     Indication: PREMEDICATION
  4. REBIF [Suspect]
     Active Substance: INTERFERON BETA-1A
     Indication: PRODUCT USED FOR UNKNOWN INDICATION
     Route: 058
     Dates: start: 20060622, end: 20151123

REACTIONS (8)
  - Injection site reaction [Recovered/Resolved]
  - Restlessness [Unknown]
  - Feeling of body temperature change [Unknown]
  - Arrhythmia [Recovered/Resolved]
  - Injection site erythema [Unknown]
  - Arthralgia [Unknown]
  - Bone pain [Unknown]
  - Influenza like illness [Recovered/Resolved]

NARRATIVE: CASE EVENT DATE: 20180212
